FAERS Safety Report 5844742-X (Version None)
Quarter: 2008Q3

REPORT INFORMATION
  Report Type: 
  Country: None (occurrence: None)
  Receive Date: 20080812
  Receipt Date: 20080728
  Transmission Date: 20090109
  Serious: Yes (Death)
  Sender: FDA-Public Use
  Company Number: 2008001785

PATIENT
  Age: 70 Year
  Sex: Female

DRUGS (7)
  1. TARCEVA [Suspect]
     Indication: LUNG ADENOCARCINOMA
     Dosage: 150 MG QD ORAL
     Route: 048
     Dates: start: 20080516, end: 20080710
  2. PHENYTOIN [Concomitant]
  3. MEGESTROL ACETATE [Concomitant]
  4. DICLOFENAC SODIUM [Concomitant]
  5. ETOFENAMATE (ETOFENAMATE) [Concomitant]
  6. SECORINE [Concomitant]
  7. BENZONATATE [Concomitant]

REACTIONS (2)
  - PNEUMONIA [None]
  - STEVENS-JOHNSON SYNDROME [None]
